FAERS Safety Report 6604076-2 (Version None)
Quarter: 2010Q1

REPORT INFORMATION
  Report Type: 
  Country: None (occurrence: None)
  Receive Date: 20100226
  Receipt Date: 20090508
  Transmission Date: 20100710
  Serious: No
  Sender: FDA-Public Use
  Company Number: A0783225A

PATIENT
  Sex: Female

DRUGS (2)
  1. LAMICTAL CD [Suspect]
     Indication: EPILEPSY
     Dosage: 25MG VARIABLE DOSE
     Route: 048
     Dates: start: 20080129
  2. OTHER MEDICATIONS [Concomitant]

REACTIONS (7)
  - ABDOMINAL DISCOMFORT [None]
  - ANXIETY [None]
  - GASTROOESOPHAGEAL REFLUX DISEASE [None]
  - MUCOUS MEMBRANE DISORDER [None]
  - POSTNASAL DRIP [None]
  - SENSATION OF FOREIGN BODY [None]
  - SINUSITIS [None]
